FAERS Safety Report 23675695 (Version 1)
Quarter: 2024Q1

REPORT INFORMATION
  Report Type: Spontaneous
  Country: US (occurrence: US)
  Receive Date: 20240327
  Receipt Date: 20240327
  Transmission Date: 20240410
  Serious: No
  Sender: FDA-Public Use
  Company Number: US-TEVA-VS-3164689

PATIENT
  Age: 9 Year
  Sex: Male
  Weight: 33.57 kg

DRUGS (2)
  1. AZITHROMYCIN [Suspect]
     Active Substance: AZITHROMYCIN
     Indication: Pharyngitis streptococcal
     Dosage: 10ML THE FIRST DAY
     Route: 065
     Dates: start: 20240227
  2. AZITHROMYCIN [Suspect]
     Active Substance: AZITHROMYCIN
     Indication: Pharyngitis streptococcal
     Dosage: 5 ML FOR DAYS 2-5
     Route: 065

REACTIONS (6)
  - Dyspepsia [Not Recovered/Not Resolved]
  - Head injury [Unknown]
  - Dyspnoea [Recovered/Resolved]
  - Throat irritation [Unknown]
  - Crying [Recovered/Resolved]
  - Emergency care examination [Recovered/Resolved]
